FAERS Safety Report 25521264 (Version 1)
Quarter: 2025Q3

REPORT INFORMATION
  Report Type: Spontaneous
  Country: US (occurrence: US)
  Receive Date: 20250705
  Receipt Date: 20250705
  Transmission Date: 20251021
  Serious: No
  Sender: STALLERGENES
  Company Number: US-STALCOR-2025-AER-02117

PATIENT
  Age: 61 Year
  Sex: Female
  Weight: 125 kg

DRUGS (30)
  1. ALLERGENIC EXTRACT- GRASS [Suspect]
     Active Substance: ALLERGENIC EXTRACT- GRASS
     Indication: Rhinitis allergic
     Route: 058
  2. ALLERGENIC EXTRACT- GRASS [Suspect]
     Active Substance: ALLERGENIC EXTRACT- GRASS
     Route: 058
     Dates: start: 20210321
  3. EUCALYPTUS [Suspect]
     Active Substance: EUCALYPTUS GLOBULUS POLLEN\EUCALYPTUS GUM
     Indication: Rhinitis allergic
     Route: 058
  4. EUCALYPTUS [Suspect]
     Active Substance: EUCALYPTUS GLOBULUS POLLEN\EUCALYPTUS GUM
     Route: 058
     Dates: start: 20210321
  5. BOX ELDER MAPLE POLLEN [Suspect]
     Active Substance: ACER NEGUNDO POLLEN
     Indication: Rhinitis allergic
     Route: 058
  6. BOX ELDER MAPLE POLLEN [Suspect]
     Active Substance: ACER NEGUNDO POLLEN
     Route: 058
     Dates: start: 20210321
  7. EASTERN OAK POLLEN MIX [Suspect]
     Active Substance: QUERCUS ALBA POLLEN\QUERCUS RUBRA POLLEN\QUERCUS VELUTINA POLLEN
     Indication: Rhinitis allergic
     Route: 058
  8. EASTERN OAK POLLEN MIX [Suspect]
     Active Substance: QUERCUS ALBA POLLEN\QUERCUS RUBRA POLLEN\QUERCUS VELUTINA POLLEN
     Route: 058
     Dates: start: 20210321
  9. ENGLISH WALNUT [Suspect]
     Active Substance: ENGLISH WALNUT
     Indication: Rhinitis allergic
     Route: 058
  10. ENGLISH WALNUT [Suspect]
     Active Substance: ENGLISH WALNUT
     Route: 058
     Dates: start: 20210321
  11. HORSE [Suspect]
     Active Substance: MENTHOL
     Indication: Rhinitis allergic
     Route: 058
  12. HORSE [Suspect]
     Active Substance: MENTHOL
     Route: 058
     Dates: start: 20210321
  13. EAST SYCAMORE [Suspect]
     Active Substance: PLATANUS OCCIDENTALIS POLLEN
     Indication: Rhinitis allergic
     Route: 058
  14. EAST SYCAMORE [Suspect]
     Active Substance: PLATANUS OCCIDENTALIS POLLEN
     Route: 058
     Dates: start: 20210321
  15. BLACK WILLOW [Suspect]
     Active Substance: SALIX NIGRA POLLEN
     Indication: Rhinitis allergic
     Route: 058
  16. BLACK WILLOW [Suspect]
     Active Substance: SALIX NIGRA POLLEN
     Route: 058
     Dates: start: 20210321
  17. ARIZONA CYPRESS [Suspect]
     Active Substance: CUPRESSUS ARIZONICA POLLEN
     Indication: Rhinitis allergic
     Route: 058
     Dates: start: 20210321
  18. ARIZONA CYPRESS [Suspect]
     Active Substance: CUPRESSUS ARIZONICA POLLEN
     Route: 058
  19. JUNIPERUS ASHEI POLLEN [Suspect]
     Active Substance: JUNIPERUS ASHEI POLLEN
     Indication: Rhinitis allergic
     Route: 058
  20. JUNIPERUS ASHEI POLLEN [Suspect]
     Active Substance: JUNIPERUS ASHEI POLLEN
     Route: 058
     Dates: start: 20210321
  21. OLEA EUROPAEA LEAF [Suspect]
     Active Substance: OLEA EUROPAEA LEAF
     Indication: Rhinitis allergic
     Route: 058
  22. OLEA EUROPAEA LEAF [Suspect]
     Active Substance: OLEA EUROPAEA LEAF
     Route: 058
     Dates: start: 20210321
  23. PRIVET [Suspect]
     Active Substance: LIGUSTRUM VULGARE POLLEN
     Indication: Rhinitis allergic
     Route: 058
  24. PRIVET [Suspect]
     Active Substance: LIGUSTRUM VULGARE POLLEN
     Route: 058
     Dates: start: 20210321
  25. WHITE ALDER [Suspect]
     Active Substance: ALNUS RHOMBIFOLIA POLLEN
     Indication: Rhinitis allergic
     Route: 058
  26. WHITE ALDER [Suspect]
     Active Substance: ALNUS RHOMBIFOLIA POLLEN
     Route: 058
     Dates: start: 20210321
  27. PHLEUM PRATENSE POLLEN [Suspect]
     Active Substance: PHLEUM PRATENSE POLLEN
     Indication: Rhinitis allergic
     Route: 058
  28. PHLEUM PRATENSE POLLEN [Suspect]
     Active Substance: PHLEUM PRATENSE POLLEN
     Route: 058
     Dates: start: 20210321
  29. STERILE DILUENT FOR ALLERGENIC EXTRACT (PHENOL) [Suspect]
     Active Substance: PHENOL
     Indication: Rhinitis allergic
     Route: 058
  30. STERILE DILUENT FOR ALLERGENIC EXTRACT (PHENOL) [Suspect]
     Active Substance: PHENOL
     Route: 058
     Dates: start: 20210321

REACTIONS (2)
  - Urticaria [Recovered/Resolved]
  - Local reaction [Recovered/Resolved]

NARRATIVE: CASE EVENT DATE: 20250416
